FAERS Safety Report 10202409 (Version 2)
Quarter: 2014Q2

REPORT INFORMATION
  Report Type: Spontaneous
  Country: US (occurrence: US)
  Receive Date: 20140528
  Receipt Date: 20140528
  Transmission Date: 20141212
  Serious: No
  Sender: FDA-Public Use
  Company Number: US-009507513-1401USA010543

PATIENT
  Age: 83 Year
  Sex: Female
  Weight: 40.82 kg

DRUGS (2)
  1. MIRALAX [Suspect]
     Indication: CONSTIPATION
     Dosage: 17 G, QOD
     Route: 048
     Dates: start: 201311
  2. MIRALAX [Suspect]
     Indication: BOWEL MOVEMENT IRREGULARITY
     Dosage: 8.5 G, UNKNOWN
     Route: 048

REACTIONS (2)
  - Underdose [Unknown]
  - Inappropriate schedule of drug administration [Unknown]
